FAERS Safety Report 8851878 (Version 1)
Quarter: 2012Q4

REPORT INFORMATION
  Report Type: 
  Country: US (occurrence: US)
  Receive Date: 20121022
  Receipt Date: 20121022
  Transmission Date: 20130627
  Serious: No
  Sender: FDA-Public Use
  Company Number: US-PFIZER INC-2012258194

PATIENT
  Sex: Male

DRUGS (2)
  1. VIAGRA [Suspect]
     Indication: ERECTILE DYSFUNCTION
     Dosage: 100 mg, UNK
  2. ACETAMINOPHEN\HYDROCODONE [Suspect]
     Indication: PAIN
     Dosage: UNK

REACTIONS (1)
  - Therapeutic response unexpected [Unknown]
